FAERS Safety Report 9993396 (Version 1)
Quarter: 2014Q1

REPORT INFORMATION
  Report Type: Spontaneous
  Country: IE (occurrence: IE)
  Receive Date: 20140310
  Receipt Date: 20140310
  Transmission Date: 20141002
  Serious: Yes (Other)
  Sender: FDA-Public Use
  Company Number: PHHY2014IE025982

PATIENT
  Age: 62 Year
  Sex: Male

DRUGS (3)
  1. EPIRUBICIN [Suspect]
     Indication: OESOPHAGEAL ADENOCARCINOMA
  2. OXALIPLATIN [Suspect]
     Indication: OESOPHAGEAL ADENOCARCINOMA
  3. CAPECITABINE [Suspect]
     Indication: OESOPHAGEAL ADENOCARCINOMA

REACTIONS (4)
  - Scleroderma [Unknown]
  - Interstitial lung disease [Unknown]
  - Dyspnoea [Unknown]
  - Lung infiltration [Unknown]
